FAERS Safety Report 6023154-2 (Version None)
Quarter: 2008Q4

REPORT INFORMATION
  Report Type: 
  Country: None (occurrence: None)
  Receive Date: 20081230
  Receipt Date: 20081229
  Transmission Date: 20090506
  Serious: Yes (Hospitalization)
  Sender: FDA-Public Use
  Company Number: B0082461A

PATIENT
  Age: 43 Year
  Sex: Female
  Weight: 68 kg

DRUGS (16)
  1. EPIVIR [Suspect]
     Indication: HIV INFECTION
     Dosage: 150MG TWICE PER DAY
     Route: 048
     Dates: start: 19970901, end: 20050720
  2. ZIDOVUDINE [Suspect]
     Indication: HIV INFECTION
     Route: 048
     Dates: start: 19970901, end: 20000622
  3. COMBIVIR [Suspect]
     Indication: HIV INFECTION
     Dosage: 2TAB PER DAY
     Dates: start: 20000623, end: 20021205
  4. EPZICOM [Suspect]
     Indication: HIV INFECTION
     Dosage: 1TAB PER DAY
     Route: 048
     Dates: start: 20050721
  5. VIRACEPT [Suspect]
     Indication: HIV INFECTION
     Dosage: 2.25G PER DAY
     Route: 048
     Dates: start: 19970901, end: 20000217
  6. COTRIM [Suspect]
     Indication: ANTIFUNGAL PROPHYLAXIS
     Route: 048
     Dates: start: 19970901, end: 19990819
  7. BENAMBAX [Suspect]
     Indication: ANTIFUNGAL PROPHYLAXIS
     Dates: start: 19970915, end: 19971015
  8. ZERIT [Suspect]
     Indication: HIV INFECTION
     Dosage: 80MG PER DAY
     Route: 048
     Dates: start: 19971110, end: 20030904
  9. STOCRIN [Suspect]
     Indication: HIV INFECTION
     Dosage: 600MG PER DAY
     Route: 048
     Dates: start: 20000218
  10. CLARITHROMYCIN [Concomitant]
     Indication: INFECTION PROPHYLAXIS
     Route: 048
     Dates: start: 19970901, end: 19990421
  11. ZOVIRAX [Concomitant]
     Indication: HERPES SIMPLEX
     Route: 061
     Dates: start: 19990114, end: 20000525
  12. ZOVIRAX [Concomitant]
     Route: 048
     Dates: start: 20000313, end: 20000323
  13. ZOVIRAX [Concomitant]
     Route: 048
     Dates: start: 20000515, end: 20000525
  14. MAGNESIUM OXIDE [Concomitant]
     Indication: CONSTIPATION
     Dosage: 1000MG PER DAY
     Route: 048
     Dates: start: 20010401
  15. ZIAGEN [Concomitant]
     Indication: ACQUIRED IMMUNODEFICIENCY SYNDROME
     Route: 048
     Dates: start: 20030905, end: 20050720
  16. DEPAS [Concomitant]
     Indication: INSOMNIA
     Dosage: .5MG PER DAY
     Route: 048
     Dates: start: 20060401

REACTIONS (6)
  - COUGH [None]
  - DIABETES MELLITUS [None]
  - DRUG ERUPTION [None]
  - HYPERGLYCAEMIA [None]
  - PNEUMOCYSTIS JIROVECI PNEUMONIA [None]
  - PYREXIA [None]
